FAERS Safety Report 11767443 (Version 4)
Quarter: 2016Q1

REPORT INFORMATION
  Report Type: Report from Study
  Country: BR (occurrence: BR)
  Receive Date: 20151123
  Receipt Date: 20160205
  Transmission Date: 20160525
  Serious: Yes (Hospitalization)
  Sender: FDA-Public Use
  Company Number: BR-ROCHE-1660952

PATIENT
  Age: 46 Year
  Sex: Female
  Weight: 34 kg

DRUGS (9)
  1. TAZOBACTAM [Concomitant]
     Active Substance: TAZOBACTAM
     Dosage: 2000 G/24H
     Route: 065
     Dates: start: 20151110, end: 20151112
  2. PIPERACILINA [Concomitant]
     Dosage: 16 G/24H
     Route: 065
     Dates: start: 20151110, end: 20151112
  3. AMICACINA [Concomitant]
     Dosage: 2 MG/L DAILY
     Route: 065
     Dates: start: 20151116, end: 20151125
  4. DEXAMETHASONE. [Concomitant]
     Active Substance: DEXAMETHASONE
     Route: 065
     Dates: start: 20151110, end: 20151110
  5. MEROPENEM. [Concomitant]
     Active Substance: MEROPENEM
     Dosage: 3 G/24H
     Route: 065
     Dates: start: 20151112, end: 20151123
  6. VANCOMICINA [Concomitant]
     Active Substance: VANCOMYCIN
     Route: 065
     Dates: start: 20151110, end: 20151112
  7. TRASTUZUMAB EMTANSINE [Suspect]
     Active Substance: ADO-TRASTUZUMAB EMTANSINE
     Indication: HER-2 POSITIVE BREAST CANCER
     Dosage: 10/NOV/2015, LAST DOSE PRIOR TO SAE
     Route: 042
     Dates: start: 20151020
  8. DIPIRONE [Concomitant]
     Active Substance: METAMIZOLE SODIUM
     Route: 065
     Dates: start: 20151110, end: 20151110
  9. PARACETAMOL [Concomitant]
     Active Substance: ACETAMINOPHEN
     Route: 065
     Dates: start: 20151110, end: 20151110

REACTIONS (1)
  - Device related infection [Recovered/Resolved]

NARRATIVE: CASE EVENT DATE: 20151110
